FAERS Safety Report 12691786 (Version 2)
Quarter: 2016Q4

REPORT INFORMATION
  Report Type: Spontaneous
  Country: US (occurrence: US)
  Receive Date: 20160826
  Receipt Date: 20161003
  Transmission Date: 20170207
  Serious: Yes (Hospitalization, Other)
  Sender: FDA-Public Use
  Company Number: US-009507513-1608USA009566

PATIENT
  Age: 63 Year
  Sex: Female

DRUGS (7)
  1. HYDRALAZINE [Concomitant]
     Active Substance: HYDRALAZINE HYDROCHLORIDE
  2. CLONIDINE. [Concomitant]
     Active Substance: CLONIDINE
  3. PROGRAF [Concomitant]
     Active Substance: TACROLIMUS\TACROLIMUS ANHYDROUS
     Dosage: 2 MG, QD
  4. COREG [Concomitant]
     Active Substance: CARVEDILOL
  5. NIFEDIPINE. [Concomitant]
     Active Substance: NIFEDIPINE
  6. ZEPATIER [Suspect]
     Active Substance: ELBASVIR\GRAZOPREVIR
     Indication: HEPATITIS C VIRUS TEST POSITIVE
     Dosage: UNK
     Route: 048
     Dates: start: 20160512, end: 20160609
  7. PROGRAF [Concomitant]
     Active Substance: TACROLIMUS\TACROLIMUS ANHYDROUS
     Dosage: 5 MG, QD

REACTIONS (7)
  - Acute kidney injury [Unknown]
  - Nasopharyngitis [Unknown]
  - Respiratory failure [Unknown]
  - Sepsis [Unknown]
  - Pneumonia [Unknown]
  - Transfusion [Unknown]
  - Cough [Unknown]

NARRATIVE: CASE EVENT DATE: 20160526
